FAERS Safety Report 10623557 (Version 2)
Quarter: 2014Q4

REPORT INFORMATION
  Report Type: Spontaneous
  Country: JP (occurrence: JP)
  Receive Date: 20141203
  Receipt Date: 20141203
  Transmission Date: 20150529
  Serious: Yes (Hospitalization)
  Sender: FDA-Public Use
  Company Number: JP-MERCK-1411JPN004974

PATIENT
  Age: 85 Year
  Sex: Female

DRUGS (1)
  1. BONALON [Suspect]
     Active Substance: ALENDRONATE SODIUM
     Indication: OSTEOPOROSIS
     Dosage: 35 MG, WEEKLY
     Route: 048
     Dates: start: 20131207, end: 20140123

REACTIONS (2)
  - Pubis fracture [Recovered/Resolved]
  - Fractured ischium [Recovered/Resolved]

NARRATIVE: CASE EVENT DATE: 201401
